APPROVED DRUG PRODUCT: ROCURONIUM BROMIDE
Active Ingredient: ROCURONIUM BROMIDE
Strength: 100MG/10ML (10MG/ML)
Dosage Form/Route: INJECTABLE;INJECTION
Application: A213453 | Product #002 | TE Code: AP
Applicant: MEITHEAL PHARMACEUTICALS INC
Approved: May 8, 2023 | RLD: No | RS: No | Type: RX